FAERS Safety Report 9386912 (Version 1)
Quarter: 2013Q3

REPORT INFORMATION
  Report Type: Spontaneous
  Country: BR (occurrence: BR)
  Receive Date: 20130708
  Receipt Date: 20130708
  Transmission Date: 20140515
  Serious: Yes (Hospitalization)
  Sender: FDA-Public Use
  Company Number: BR-JNJFOC-20130615583

PATIENT
  Age: 58 Year
  Sex: Female
  Weight: 94 kg

DRUGS (8)
  1. REMICADE [Suspect]
     Indication: RHEUMATOID ARTHRITIS
     Route: 042
     Dates: start: 20130522
  2. REMICADE [Suspect]
     Indication: RHEUMATOID ARTHRITIS
     Route: 042
     Dates: start: 201305
  3. REMICADE [Suspect]
     Indication: RHEUMATOID ARTHRITIS
     Route: 042
     Dates: start: 201303
  4. TOPIRAMATE [Concomitant]
     Route: 065
  5. KETOPROFEN [Concomitant]
     Route: 065
  6. SIMVASTATIN [Concomitant]
     Route: 065
  7. SELOZOK [Concomitant]
     Route: 065
  8. PURAN T4 [Concomitant]
     Route: 065

REACTIONS (2)
  - Joint swelling [Recovering/Resolving]
  - Oedema peripheral [Recovering/Resolving]
